FAERS Safety Report 5624392-0 (Version None)
Quarter: 2008Q1

REPORT INFORMATION
  Report Type: 
  Country: None (occurrence: None)
  Receive Date: 20080213
  Receipt Date: 20080129
  Transmission Date: 20080703
  Serious: Yes (Hospitalization, Other)
  Sender: FDA-Public Use
  Company Number: US-JNJFOC-20080101287

PATIENT
  Sex: Male
  Weight: 137.21 kg

DRUGS (7)
  1. INVEGA [Suspect]
     Route: 048
  2. INVEGA [Suspect]
     Indication: SCHIZOPHRENIA
     Route: 048
  3. DIABETES MEDICINE [Concomitant]
     Indication: DIABETES MELLITUS
  4. BLOOD PRESSURE MEDICINE [Concomitant]
     Indication: BLOOD PRESSURE
  5. CELEXA [Concomitant]
  6. COGENTIN [Concomitant]
     Indication: DYSKINESIA
  7. ARTANE [Concomitant]

REACTIONS (1)
  - TARDIVE DYSKINESIA [None]
